FAERS Safety Report 17281554 (Version 1)
Quarter: 2020Q1

REPORT INFORMATION
  Report Type: Spontaneous
  Country: US (occurrence: US)
  Receive Date: 20191227
  Receipt Date: 20191227
  Transmission Date: 20200409
  Serious: No
  Sender: FDA-Public Use
  Company Number: None

PATIENT
  Age: 71 Year
  Sex: Male
  Weight: 74.84 kg

DRUGS (1)
  1. ATENOLOL 25MG [Suspect]
     Active Substance: ATENOLOL
     Indication: PALPITATIONS
     Dosage: ?          QUANTITY:1 ;?
     Route: 048
     Dates: start: 20190928, end: 20191201

REACTIONS (1)
  - Heart rate increased [None]

NARRATIVE: CASE EVENT DATE: 20191120
